FAERS Safety Report 11854320 (Version 1)
Quarter: 2015Q4

REPORT INFORMATION
  Report Type: Report from Study
  Country: US (occurrence: US)
  Receive Date: 20151221
  Receipt Date: 20151221
  Transmission Date: 20160305
  Serious: No
  Sender: FDA-Public Use
  Company Number: US-AMGEN-USASL2015133818

PATIENT
  Age: 43 Year
  Sex: Female

DRUGS (1)
  1. ENBREL [Suspect]
     Active Substance: ETANERCEPT
     Indication: RHEUMATOID ARTHRITIS
     Dosage: UNK
     Route: 065
     Dates: start: 20150925, end: 201511

REACTIONS (6)
  - Injection site warmth [Unknown]
  - Injection site reaction [Unknown]
  - Dry eye [Unknown]
  - Eye disorder [Unknown]
  - Injection site swelling [Unknown]
  - Eye pain [Unknown]
